FAERS Safety Report 17959376 (Version 1)
Quarter: 2020Q2

REPORT INFORMATION
  Report Type: Spontaneous
  Country: FR (occurrence: FR)
  Receive Date: 20200630
  Receipt Date: 20200630
  Transmission Date: 20200714
  Serious: Yes (Other)
  Sender: FDA-Public Use
  Company Number: FR-AUROBINDO-AUR-APL-2020-031128

PATIENT
  Age: 47 Year

DRUGS (5)
  1. TENOFOVIR + EMTRICITABINE FILM COATED TABLETS [Suspect]
     Active Substance: EMTRICITABINE\TENOFOVIR
     Dosage: UNK
     Route: 048
     Dates: start: 2015
  2. EDURANT [Concomitant]
     Active Substance: RILPIVIRINE HYDROCHLORIDE
     Indication: PRODUCT USED FOR UNKNOWN INDICATION
     Dosage: UNK
     Route: 065
     Dates: start: 20171117
  3. TENOFOVIR + EMTRICITABINE FILM COATED TABLETS [Suspect]
     Active Substance: EMTRICITABINE\TENOFOVIR
     Dosage: ONCE DAY
  4. EVIPLERA [Suspect]
     Active Substance: EMTRICITABINE\RILPIVIRINE\TENOFOVIR DISOPROXIL FUMARATE
     Indication: PRODUCT USED FOR UNKNOWN INDICATION
     Dosage: UNK
     Route: 065
     Dates: start: 2015
  5. TENOFOVIR + EMTRICITABINE FILM COATED TABLETS [Suspect]
     Active Substance: EMTRICITABINE\TENOFOVIR
     Indication: HIV INFECTION
     Dosage: UNK, 3/7 DAYS
     Route: 065
     Dates: start: 2001

REACTIONS (17)
  - Gout [Not Recovered/Not Resolved]
  - Drug resistance [Unknown]
  - Anxiety [Not Recovered/Not Resolved]
  - Arthralgia [Not Recovered/Not Resolved]
  - Blood creatinine increased [Recovering/Resolving]
  - Myalgia [Unknown]
  - Blood triglycerides abnormal [Unknown]
  - Rheumatoid arthritis [Unknown]
  - Intentional product misuse [Not Recovered/Not Resolved]
  - Blood uric acid increased [Not Recovered/Not Resolved]
  - Muscle spasms [Not Recovered/Not Resolved]
  - Vitamin D deficiency [Unknown]
  - Renal failure [Unknown]
  - Blood cholesterol increased [Recovering/Resolving]
  - Diabetes mellitus [Unknown]
  - Gait disturbance [Not Recovered/Not Resolved]
  - CD4 lymphocytes decreased [Unknown]
